FAERS Safety Report 4302032-0 (Version None)
Quarter: 2004Q1

REPORT INFORMATION
  Report Type: 
  Country: None (occurrence: None)
  Receive Date: 20040223
  Receipt Date: 20040213
  Transmission Date: 20041129
  Serious: Yes (Disabling, Other)
  Sender: FDA-Public Use
  Company Number: CH-BRISTOL-MYERS SQUIBB COMPANY-12509568

PATIENT
  Age: 87 Year
  Sex: Female

DRUGS (3)
  1. GLUCOPHAGE [Suspect]
     Indication: DIABETES MELLITUS
     Route: 048
     Dates: end: 20030701
  2. ZESTRIL [Suspect]
     Indication: ESSENTIAL HYPERTENSION
     Route: 048
  3. ARIMIDEX [Suspect]
     Indication: BREAST CANCER
     Route: 048

REACTIONS (1)
  - CHOLESTASIS [None]
